FAERS Safety Report 5081888-0 (Version None)
Quarter: 2006Q3

REPORT INFORMATION
  Report Type: 
  Country: None (occurrence: None)
  Receive Date: 20060816
  Receipt Date: 20060804
  Transmission Date: 20061208
  Serious: Yes (Death)
  Sender: FDA-Public Use
  Company Number: JP-JNJFOC-20060801177

PATIENT
  Age: 8 Year
  Sex: Female
  Weight: 20 kg

DRUGS (2)
  1. REMICADE [Suspect]
     Indication: CROHN'S DISEASE
  2. ADRENAL HORMONE PREPARATION [Suspect]
     Indication: PREMEDICATION

REACTIONS (1)
  - SEPSIS [None]
